FAERS Safety Report 6892404-2 (Version None)
Quarter: 2010Q3

REPORT INFORMATION
  Report Type: 
  Country: None (occurrence: None)
  Receive Date: 20100731
  Receipt Date: 20080630
  Transmission Date: 20110219
  Serious: No
  Sender: FDA-Public Use
  Company Number: US-PFIZER INC-2008037669

PATIENT
  Sex: Male
  Weight: 75.454 kg

DRUGS (3)
  1. CAVERJECT [Suspect]
     Indication: ERECTILE DYSFUNCTION
     Dosage: 20MCG PRN
     Dates: start: 20080101
  2. HYDROCHLOROTHIAZIDE [Concomitant]
  3. METOPROLOL TARTRATE [Concomitant]

REACTIONS (2)
  - DRUG INEFFECTIVE [None]
  - INJECTION SITE PAIN [None]
